FAERS Safety Report 8516664-7 (Version None)
Quarter: 2012Q3

REPORT INFORMATION
  Report Type: 
  Country: None (occurrence: None)
  Receive Date: 20120718
  Receipt Date: 20120716
  Transmission Date: 20120928
  Serious: Yes (Other)
  Sender: FDA-Public Use
  Company Number: US-AMGEN-USASP2012043843

PATIENT
  Age: 54 Year
  Sex: Male

DRUGS (3)
  1. ENBREL [Suspect]
     Indication: RHEUMATOID ARTHRITIS
     Dosage: 50 MG, QWK
     Dates: start: 20111229
  2. ENBREL [Suspect]
     Indication: PSORIATIC ARTHROPATHY
  3. ARAVA [Concomitant]
     Dosage: 1 MG, QD
     Dates: start: 20120101

REACTIONS (3)
  - MEMORY IMPAIRMENT [None]
  - ABDOMINAL PAIN [None]
  - DRUG INEFFECTIVE [None]
